APPROVED DRUG PRODUCT: APREMILAST
Active Ingredient: APREMILAST
Strength: 30MG
Dosage Form/Route: TABLET;ORAL
Application: A211716 | Product #003
Applicant: AUROBINDO PHARMA LTD
Approved: Jul 19, 2023 | RLD: No | RS: No | Type: DISCN